FAERS Safety Report 4432252-6 (Version None)
Quarter: 2004Q3

REPORT INFORMATION
  Report Type: 
  Country: None (occurrence: None)
  Receive Date: 20040819
  Receipt Date: 20040805
  Transmission Date: 20050211
  Serious: Yes (Hospitalization)
  Sender: FDA-Public Use
  Company Number: 2004-119358-NL

PATIENT
  Age: 77 Year

DRUGS (7)
  1. REMERON [Suspect]
     Dosage: 30 MG DAILY
     Dates: start: 20040401, end: 20040803
  2. PROTONIX [Suspect]
     Indication: PANCREATITIS
     Dosage: INTRAVENOUS (NOS)
     Route: 042
     Dates: start: 20040501, end: 20040804
  3. OTHER MEDS (NOS) [Suspect]
     Dates: start: 20040101, end: 20040804
  4. DIFLUCAN [Concomitant]
  5. VANCOMYCIN [Concomitant]
  6. TPN [Concomitant]
  7. HEPARIN [Concomitant]

REACTIONS (9)
  - DYSPNOEA [None]
  - DYSTONIA [None]
  - EXTRAPYRAMIDAL DISORDER [None]
  - HYPERTENSION [None]
  - MENTAL STATUS CHANGES [None]
  - PANCREATITIS [None]
  - RESTLESSNESS [None]
  - TACHYCARDIA [None]
  - TREMOR [None]
